FAERS Safety Report 9221485 (Version 1)
Quarter: 2013Q2

REPORT INFORMATION
  Report Type: Spontaneous
  Country: US (occurrence: None)
  Receive Date: 20130408
  Receipt Date: 20130408
  Transmission Date: 20140414
  Serious: No
  Sender: FDA-Public Use
  Company Number: None

PATIENT
  Age: 52 Year
  Sex: Female
  Weight: 49.9 kg

DRUGS (1)
  1. ZANTAC [Suspect]
     Indication: ABDOMINAL DISCOMFORT
     Dosage: 150 MG WITH 16 OUNCES OF WATER, 2 TWICE IN 48 HOUR
     Route: 048
     Dates: start: 20130331, end: 20130402

REACTIONS (2)
  - Pain in extremity [None]
  - Drug ineffective [None]
